FAERS Safety Report 5821219-9 (Version None)
Quarter: 2008Q3

REPORT INFORMATION
  Report Type: 
  Country: None (occurrence: None)
  Receive Date: 20080723
  Receipt Date: 20080723
  Transmission Date: 20090109
  Serious: Yes (Other)
  Sender: FDA-Public Use
  Company Number: None

PATIENT

DRUGS (1)
  1. ALBUTEROL [Suspect]
     Dosage: 100% MULTIPLE PRESCRIPS
     Dates: start: 20070901, end: 20080201

REACTIONS (3)
  - PHARMACEUTICAL PRODUCT COMPLAINT [None]
  - RESPIRATORY DISTRESS [None]
  - UNDERDOSE [None]
